FAERS Safety Report 24225615 (Version 3)
Quarter: 2025Q1

REPORT INFORMATION
  Report Type: Spontaneous
  Country: CA (occurrence: CA)
  Receive Date: 20240820
  Receipt Date: 20250325
  Transmission Date: 20250409
  Serious: Yes (Hospitalization, Other)
  Sender: SANDOZ
  Company Number: CA-SANDOZ-SDZ2024CA072540

PATIENT
  Age: 65 Year
  Sex: Female

DRUGS (33)
  1. APIXABAN [Suspect]
     Active Substance: APIXABAN
     Indication: Product used for unknown indication
     Dosage: 5 MG, Q12H
     Route: 065
  2. BREXPIPRAZOLE [Suspect]
     Active Substance: BREXPIPRAZOLE
     Indication: Depression
     Route: 065
  3. BREXPIPRAZOLE [Suspect]
     Active Substance: BREXPIPRAZOLE
     Indication: Insomnia
  4. BUPROPION HYDROCHLORIDE XL [Suspect]
     Active Substance: BUPROPION HYDROCHLORIDE
     Route: 065
  5. BUPROPION HYDROCHLORIDE XL [Suspect]
     Active Substance: BUPROPION HYDROCHLORIDE
     Indication: Depression
     Dosage: 400 MG, QD
     Route: 065
  6. BUPROPION HYDROCHLORIDE XL [Suspect]
     Active Substance: BUPROPION HYDROCHLORIDE
     Dosage: 450 MG, QD
     Route: 065
  7. CANNABIS SATIVA FLOWERING TOP [Suspect]
     Active Substance: CANNABIS SATIVA FLOWERING TOP
     Indication: Insomnia
     Route: 065
  8. CLOMIPRAMINE [Suspect]
     Active Substance: CLOMIPRAMINE
     Indication: Depression
     Route: 065
  9. ESCITALOPRAM [Suspect]
     Active Substance: ESCITALOPRAM OXALATE
     Indication: Depression
     Route: 065
  10. FLUOXETINE [Suspect]
     Active Substance: FLUOXETINE HYDROCHLORIDE
     Indication: Depression
     Route: 065
  11. FLUVOXAMINE [Suspect]
     Active Substance: FLUVOXAMINE
     Indication: Depression
     Route: 065
  12. GABAPENTIN [Suspect]
     Active Substance: GABAPENTIN
     Indication: Depression
     Route: 065
  13. LORAZEPAM [Suspect]
     Active Substance: LORAZEPAM
     Indication: Depression
     Route: 065
  14. LURASIDONE HYDROCHLORIDE [Suspect]
     Active Substance: LURASIDONE HYDROCHLORIDE
     Dosage: 20 MG, QD
     Route: 065
  15. LURASIDONE HYDROCHLORIDE [Suspect]
     Active Substance: LURASIDONE HYDROCHLORIDE
     Dosage: 20 MG, QD
     Route: 065
  16. LURASIDONE HYDROCHLORIDE [Suspect]
     Active Substance: LURASIDONE HYDROCHLORIDE
     Indication: Product used for unknown indication
     Dosage: 40 MG, QD
     Route: 065
  17. LAMOTRIGINE [Suspect]
     Active Substance: LAMOTRIGINE
     Indication: Product used for unknown indication
     Dosage: 300 MG, QD
     Route: 065
  18. LEMBOREXANT [Suspect]
     Active Substance: LEMBOREXANT
     Indication: Depression
     Route: 048
  19. LEMBOREXANT [Suspect]
     Active Substance: LEMBOREXANT
     Indication: Insomnia
  20. LEVOMEPROMAZINE [Suspect]
     Active Substance: LEVOMEPROMAZINE
     Indication: Depression
     Route: 065
  21. MIRTAZAPINE [Suspect]
     Active Substance: MIRTAZAPINE
     Indication: Depression
     Route: 065
  22. OLANZAPINE [Suspect]
     Active Substance: OLANZAPINE
     Indication: Depression
     Route: 065
  23. PANTOPRAZOLE [Suspect]
     Active Substance: PANTOPRAZOLE
     Indication: Product used for unknown indication
     Dosage: 40 MG, QD
     Route: 065
  24. PAROXETINE [Suspect]
     Active Substance: PAROXETINE
     Indication: Depression
     Route: 065
  25. PRAMIPEXOLE [Suspect]
     Active Substance: PRAMIPEXOLE
     Indication: Insomnia
     Dosage: 0.25 MG, Q12H
     Route: 065
  26. PRAMIPEXOLE [Suspect]
     Active Substance: PRAMIPEXOLE
     Indication: Depression
  27. QUETIAPINE [Suspect]
     Active Substance: QUETIAPINE
     Indication: Depression
     Route: 065
  28. RISPERIDONE [Suspect]
     Active Substance: RISPERIDONE
     Indication: Depression
     Route: 065
  29. VENLAFAXINE HYDROCHLORIDE [Suspect]
     Active Substance: VENLAFAXINE HYDROCHLORIDE
     Indication: Depression
     Route: 065
  30. VORTIOXETINE [Suspect]
     Active Substance: VORTIOXETINE
     Indication: Depression
     Dosage: 10 MG, QD
     Route: 065
  31. ZOLPIDEM TARTRATE [Suspect]
     Active Substance: ZOLPIDEM TARTRATE
     Indication: Depression
     Dosage: 10 MG, QD
     Route: 065
  32. ZOPICLONE [Suspect]
     Active Substance: ZOPICLONE
     Indication: Depression
     Route: 065
  33. PANTOPRAZOLE [Concomitant]
     Active Substance: PANTOPRAZOLE
     Indication: Product used for unknown indication
     Dosage: 40 MG, QD
     Route: 065

REACTIONS (4)
  - Condition aggravated [Recovered/Resolved]
  - Suicidal ideation [Recovered/Resolved]
  - Suicide attempt [Recovered/Resolved]
  - Drug ineffective [Recovered/Resolved]
